FAERS Safety Report 7332616-7 (Version None)
Quarter: 2011Q1

REPORT INFORMATION
  Report Type: 
  Country: None (occurrence: None)
  Receive Date: 20110222
  Receipt Date: 20110209
  Transmission Date: 20110831
  Serious: Yes (Hospitalization)
  Sender: FDA-Public Use
  Company Number: 2011MA001225

PATIENT
  Age: 26 Year
  Sex: Male

DRUGS (4)
  1. RIFAMPIN [Suspect]
     Indication: PULMONARY TUBERCULOSIS
  2. PYRAZINAMIDE [Suspect]
     Indication: PULMONARY TUBERCULOSIS
  3. ETHAMBUTOL (ETHAMBUTOL) [Suspect]
     Indication: PULMONARY TUBERCULOSIS
     Dosage: 31.6 MG; PO
     Route: 048
  4. ISONIAZID [Suspect]
     Indication: PULMONARY TUBERCULOSIS

REACTIONS (12)
  - CONJUNCTIVAL HYPERAEMIA [None]
  - PYREXIA [None]
  - DIARRHOEA [None]
  - TRANSAMINASES INCREASED [None]
  - PRURIGO [None]
  - DRUG HYPERSENSITIVITY [None]
  - RASH MACULO-PAPULAR [None]
  - EOSINOPHILIA [None]
  - HYPOTENSION [None]
  - OEDEMA [None]
  - DYSPNOEA [None]
  - HYPOXIA [None]
